FAERS Safety Report 12922676 (Version 1)
Quarter: 2016Q4

REPORT INFORMATION
  Report Type: Spontaneous
  Country: US (occurrence: US)
  Receive Date: 20161108
  Receipt Date: 20161108
  Transmission Date: 20170207
  Serious: Yes (Life-Threatening)
  Sender: FDA-Public Use
  Company Number: None

PATIENT
  Age: 15 Year
  Sex: Male
  Weight: 58.7 kg

DRUGS (4)
  1. ONCASPAR [Suspect]
     Active Substance: PEGASPARGASE
     Indication: ACUTE LYMPHOCYTIC LEUKAEMIA
     Dosage: 4100 IU INTERNATIONAL UNIT(S) INTRAVENOUS (NOT OTHERWISE SPECIFIED)
     Route: 042
     Dates: start: 20161011, end: 20161011
  2. AZTREONAM. [Concomitant]
     Active Substance: AZTREONAM
  3. VINCRISTINE [Concomitant]
     Active Substance: VINCRISTINE
  4. CLINDAMYCIN. [Concomitant]
     Active Substance: CLINDAMYCIN

REACTIONS (7)
  - Hypotension [None]
  - Vision blurred [None]
  - Generalised tonic-clonic seizure [None]
  - Paraesthesia [None]
  - Throat irritation [None]
  - Supraventricular tachycardia [None]
  - Dyspnoea [None]

NARRATIVE: CASE EVENT DATE: 20161011
